FAERS Safety Report 25669680 (Version 2)
Quarter: 2025Q3

REPORT INFORMATION
  Report Type: Report from Study
  Country: US (occurrence: US)
  Receive Date: 20250812
  Receipt Date: 20250821
  Transmission Date: 20251021
  Serious: Yes (Hospitalization, Other)
  Sender: ABBVIE
  Company Number: US-ABBVIE-6406259

PATIENT
  Age: 51 Year
  Sex: Female

DRUGS (1)
  1. HUMIRA [Suspect]
     Active Substance: ADALIMUMAB
     Indication: Hidradenitis
     Route: 058
     Dates: start: 20230117

REACTIONS (7)
  - Large intestine perforation [Unknown]
  - Intestinal mucosal tear [Unknown]
  - Diverticulitis [Unknown]
  - Visual impairment [Unknown]
  - Administration site bruise [Unknown]
  - Abscess intestinal [Recovering/Resolving]
  - Gastrointestinal erosion [Recovering/Resolving]

NARRATIVE: CASE EVENT DATE: 20250101
